FAERS Safety Report 7618471-6 (Version None)
Quarter: 2011Q3

REPORT INFORMATION
  Report Type: 
  Country: None (occurrence: None)
  Receive Date: 20110718
  Receipt Date: 20110705
  Transmission Date: 20111222
  Serious: Yes (Hospitalization, Disabling)
  Sender: FDA-Public Use
  Company Number: US-MERCK-96070701

PATIENT
  Age: 62 Year
  Sex: Female

DRUGS (7)
  1. VITAMIN E [Concomitant]
     Route: 065
  2. FOSAMAX [Suspect]
     Indication: OSTEOPOROSIS
     Route: 048
     Dates: start: 19960702
  3. PREMARIN [Concomitant]
     Route: 065
  4. FOSAMAX [Suspect]
     Route: 048
     Dates: start: 20000101, end: 20100101
  5. ATENOLOL [Concomitant]
     Route: 065
  6. CALCIUM [Concomitant]
     Route: 065
  7. VITAMINS [Concomitant]
     Route: 065

REACTIONS (8)
  - GAIT DISTURBANCE [None]
  - JAW DISORDER [None]
  - DYSPHAGIA [None]
  - DYSPEPSIA [None]
  - CHOKING [None]
  - TOOTH DISORDER [None]
  - ARTHROPATHY [None]
  - LIMB DISCOMFORT [None]
